FAERS Safety Report 15967415 (Version 1)
Quarter: 2019Q1

REPORT INFORMATION
  Report Type: Spontaneous
  Country: US (occurrence: US)
  Receive Date: 20190215
  Receipt Date: 20190215
  Transmission Date: 20190418
  Serious: No
  Sender: FDA-Public Use
  Company Number: US-PERRIGO-18US010076

PATIENT
  Age: 61 Year
  Sex: Female
  Weight: 86.17 kg

DRUGS (1)
  1. CETIRIZINE HYDROCHLORIDE. [Suspect]
     Active Substance: CETIRIZINE HYDROCHLORIDE
     Indication: INFLUENZA
     Dosage: 10 MG, TWICE
     Route: 048
     Dates: start: 20180924, end: 20180924

REACTIONS (3)
  - Expired product administered [Recovered/Resolved]
  - Somnolence [Unknown]
  - Off label use [Recovered/Resolved]

NARRATIVE: CASE EVENT DATE: 20180924
